FAERS Safety Report 8818092 (Version 2)
Quarter: 2013Q1

REPORT INFORMATION
  Report Type: Spontaneous
  Country: US (occurrence: US)
  Receive Date: 20121001
  Receipt Date: 20130114
  Transmission Date: 20140127
  Serious: No
  Sender: FDA-Public Use
  Company Number: US-009507513-1208USA003516

PATIENT
  Sex: Female

DRUGS (9)
  1. PEG-INTRON [Suspect]
     Indication: HEPATITIS C
     Dosage: UNK
     Route: 048
     Dates: start: 1986
  2. PEG-INTRON [Suspect]
     Dosage: REDIPEN
     Route: 048
     Dates: start: 20000101, end: 20000301
  3. PEG-INTRON [Suspect]
     Dosage: UNK
     Route: 048
     Dates: start: 20120730, end: 20121030
  4. PEG-INTRON [Suspect]
     Dosage: UNK
     Route: 048
     Dates: start: 19950101, end: 19950106
  5. PEG-INTRON [Suspect]
     Dosage: UNK
     Route: 048
     Dates: start: 19930101
  6. RIBAVIRIN [Suspect]
     Dosage: UNK UNK, QD
     Dates: start: 20120730, end: 20121030
  7. RIBAVIRIN [Suspect]
     Dosage: 4 UNK, UNK
  8. RIBAVIRIN [Suspect]
     Dosage: UNK
     Dates: start: 20000101, end: 20000301
  9. VICTRELIS [Suspect]
     Indication: HEPATITIS C
     Dosage: UNK
     Route: 048
     Dates: start: 20120827, end: 20121030

REACTIONS (18)
  - Influenza [Unknown]
  - White blood cell count decreased [Unknown]
  - White blood cell count decreased [Unknown]
  - Fatigue [Unknown]
  - Myalgia [Unknown]
  - Asthenia [Unknown]
  - Drug ineffective [Unknown]
  - Headache [Recovered/Resolved]
  - Pain [Unknown]
  - Memory impairment [Unknown]
  - Confusional state [Unknown]
  - Myalgia [Unknown]
  - Red blood cell count decreased [Unknown]
  - Drug dose omission [Unknown]
  - Hepatitis C RNA fluctuation [Unknown]
  - Influenza [Unknown]
  - Myalgia [Unknown]
  - Fatigue [Unknown]
